FAERS Safety Report 22053743 (Version 1)
Quarter: 2023Q1

REPORT INFORMATION
  Report Type: Report from Study
  Country: EG (occurrence: EG)
  Receive Date: 20230302
  Receipt Date: 20230302
  Transmission Date: 20230418
  Serious: Yes (Death, Other)
  Sender: FDA-Public Use
  Company Number: EG-002147023-NVSC2022EG250329

PATIENT
  Sex: Female

DRUGS (7)
  1. AFINITOR [Suspect]
     Active Substance: EVEROLIMUS
     Indication: Breast cancer metastatic
     Dosage: 5 MG, QD
     Route: 065
     Dates: start: 20220701
  2. AFINITOR [Suspect]
     Active Substance: EVEROLIMUS
     Indication: Bone cancer
  3. KISQALI [Suspect]
     Active Substance: RIBOCICLIB
     Indication: Bone cancer metastatic
     Dosage: 200 MG (START DATE 8 MONTHS AGO AND STOP DATE 1.5 MONTHS AGO (2023) AS PER REPORTER)
     Route: 048
     Dates: start: 2022
  4. KISQALI [Suspect]
     Active Substance: RIBOCICLIB
     Indication: Breast cancer metastatic
  5. AROMASIN [Concomitant]
     Active Substance: EXEMESTANE
     Indication: Neoplasm malignant
     Dosage: UNK (8 MONTHS AGO WITH KISQALI AND  STOPPED 1.5 MONTHS AGO)
     Route: 065
     Dates: start: 2022
  6. LIPITOR [Concomitant]
     Active Substance: ATORVASTATIN CALCIUM
     Indication: Diabetes mellitus
     Dosage: UNK (5 OR 6 YEARS AGO)
     Route: 065
  7. VALSARTAN [Concomitant]
     Active Substance: VALSARTAN
     Indication: Hypertension
     Dosage: UNK (30 YEARS AGO)
     Route: 065

REACTIONS (10)
  - Death [Fatal]
  - Breast cancer metastatic [Unknown]
  - Bone cancer metastatic [Unknown]
  - Malignant neoplasm progression [Unknown]
  - Gait inability [Unknown]
  - Dysstasia [Unknown]
  - Bone pain [Unknown]
  - Insomnia [Unknown]
  - Fatigue [Recovering/Resolving]
  - Cough [Unknown]
